FAERS Safety Report 10197030 (Version 1)
Quarter: 2014Q2

REPORT INFORMATION
  Report Type: Spontaneous
  Country: US (occurrence: US)
  Receive Date: 20140527
  Receipt Date: 20140527
  Transmission Date: 20141212
  Serious: Yes (Other)
  Sender: FDA-Public Use
  Company Number: US-GLAXOSMITHKLINE-A1074426A

PATIENT
  Sex: Female

DRUGS (1)
  1. NICORETTE [Suspect]
     Dosage: 20GUM PER DAY
     Route: 002

REACTIONS (3)
  - Myocardial infarction [Unknown]
  - Nicotine dependence [Unknown]
  - Drug administration error [Unknown]
